FAERS Safety Report 5262121-3 (Version None)
Quarter: 2007Q1

REPORT INFORMATION
  Report Type: 
  Country: None (occurrence: None)
  Receive Date: 20070311
  Receipt Date: 20070228
  Transmission Date: 20070707
  Serious: Yes (Hospitalization)
  Sender: FDA-Public Use
  Company Number: 2006UW24516

PATIENT
  Sex: Male
  Weight: 70.5 kg

DRUGS (12)
  1. SEROQUEL [Suspect]
     Indication: SCHIZOPHRENIA
     Route: 048
     Dates: start: 20000101
  2. SEROQUEL [Suspect]
     Indication: PARANOIA
     Route: 048
     Dates: start: 20000101
  3. SEROQUEL [Suspect]
     Indication: DEPRESSION
     Route: 048
     Dates: start: 20000101
  4. RISPERDAL [Suspect]
  5. ZYPREXA [Suspect]
  6. ABILIFY [Concomitant]
  7. HALDOL [Concomitant]
  8. NAVANE [Concomitant]
  9. THORAZINE [Concomitant]
  10. TRILAFON [Concomitant]
  11. LEXAPRO [Concomitant]
  12. CYMBALTA [Concomitant]

REACTIONS (3)
  - ABSCESS [None]
  - DIABETES MELLITUS [None]
  - HYPERTENSION [None]
